FAERS Safety Report 26208328 (Version 1)
Quarter: 2025Q4

REPORT INFORMATION
  Report Type: Spontaneous
  Country: US (occurrence: None)
  Receive Date: 20251226
  Receipt Date: 20251226
  Transmission Date: 20260118
  Serious: Yes (Other)
  Sender: FDA-CTU
  Company Number: None

PATIENT
  Age: 36 Year
  Sex: Female
  Weight: 60.75 kg

DRUGS (4)
  1. NALTREXONE [Suspect]
     Active Substance: NALTREXONE
     Indication: Fatigue
     Dosage: OTHER QUANTITY : 1 CAPSULE(S);?FREQUENCY : DAILY;
     Route: 048
     Dates: start: 20251225, end: 20251226
  2. CLONAZEPAM [Concomitant]
     Active Substance: CLONAZEPAM
  3. Multi Vitamin c [Concomitant]
  4. FISH OIL [Concomitant]
     Active Substance: FISH OIL

REACTIONS (7)
  - Product preparation error [None]
  - Vertigo [None]
  - Balance disorder [None]
  - Gait disturbance [None]
  - Lethargy [None]
  - Sedation [None]
  - Loss of consciousness [None]

NARRATIVE: CASE EVENT DATE: 20251225
